FAERS Safety Report 5742738-X (Version None)
Quarter: 2008Q2

REPORT INFORMATION
  Report Type: 
  Country: None (occurrence: None)
  Receive Date: 20080515
  Receipt Date: 20080515
  Transmission Date: 20081010
  Serious: Yes (Other)
  Sender: FDA-Public Use
  Company Number: None

PATIENT
  Age: 53 Year
  Sex: Female

DRUGS (3)
  1. MOBIC [Suspect]
     Indication: BURSITIS
     Dosage: 7.5 MGM PO
     Route: 048
     Dates: start: 20080411, end: 20080423
  2. SINGULAIR [Concomitant]
  3. CLARITIN [Concomitant]

REACTIONS (2)
  - ORAL DISORDER [None]
  - PAIN [None]
